FAERS Safety Report 4293127-9 (Version None)
Quarter: 2004Q1

REPORT INFORMATION
  Report Type: 
  Country: None (occurrence: None)
  Receive Date: 20040210
  Receipt Date: 20040127
  Transmission Date: 20041129
  Serious: Yes (Death)
  Sender: FDA-Public Use
  Company Number: 430001L04USA

PATIENT
  Age: 59 Year

DRUGS (4)
  1. NOVANTRONE [Suspect]
     Indication: ACUTE MYELOID LEUKAEMIA
     Dosage: 12 MG/M2
  2. NOVANTRONE [Suspect]
     Indication: MYELODYSPLASTIC SYNDROME
     Dosage: 12 MG/M2
  3. GEMTUZUMAB OZAGAMICIN [Suspect]
     Indication: ACUTE MYELOID LEUKAEMIA
     Dosage: 9 MG/M2
  4. GEMTUZUMAB OZAGAMICIN [Suspect]
     Indication: MYELODYSPLASTIC SYNDROME
     Dosage: 9 MG/M2

REACTIONS (2)
  - FEBRILE NEUTROPENIA [None]
  - HYPOTENSION [None]
